FAERS Safety Report 11139307 (Version 1)
Quarter: 2015Q2

REPORT INFORMATION
  Report Type: Spontaneous
  Country: US (occurrence: None)
  Receive Date: 20150526
  Receipt Date: 20150526
  Transmission Date: 20150821
  Serious: No
  Sender: FDA-Public Use
  Company Number: None

PATIENT
  Age: 61 Year

DRUGS (11)
  1. BYSTOLIC [Concomitant]
     Active Substance: NEBIVOLOL HYDROCHLORIDE
  2. SYNTHROID [Concomitant]
     Active Substance: LEVOTHYROXINE SODIUM
  3. ZOMETA [Concomitant]
     Active Substance: ZOLEDRONIC ACID
  4. CALCIUM [Concomitant]
     Active Substance: CALCIUM
  5. MAGNESIUM [Concomitant]
     Active Substance: MAGNESIUM
  6. POTASSIUM [Concomitant]
     Active Substance: POTASSIUM
  7. CRESTOR [Concomitant]
     Active Substance: ROSUVASTATIN CALCIUM
  8. EXEMESTANE. [Concomitant]
     Active Substance: EXEMESTANE
  9. METFORMIN [Concomitant]
     Active Substance: METFORMIN HYDROCHLORIDE
  10. AFINITOR [Suspect]
     Active Substance: EVEROLIMUS
     Indication: BREAST CANCER
     Route: 048
     Dates: start: 20141103, end: 20150520
  11. ASPIRIN. [Concomitant]
     Active Substance: ASPIRIN

REACTIONS (1)
  - Rash [None]

NARRATIVE: CASE EVENT DATE: 20150520
